FAERS Safety Report 5069290-9 (Version None)
Quarter: 2006Q3

REPORT INFORMATION
  Report Type: 
  Country: None (occurrence: None)
  Receive Date: 20060731
  Receipt Date: 20060719
  Transmission Date: 20061208
  Serious: Yes (Hospitalization, Other)
  Sender: FDA-Public Use
  Company Number: 2006089786

PATIENT
  Age: 47 Year
  Sex: Female
  Weight: 86.1834 kg

DRUGS (7)
  1. GEODON [Suspect]
     Indication: SCHIZOAFFECTIVE DISORDER
     Dosage: 160 MG (160 MG, 1 IN 1 D)
     Dates: start: 20050201
  2. PAXIL CR [Concomitant]
  3. XANAX XR [Concomitant]
  4. AMBIEN [Concomitant]
  5. CLOZARIL [Concomitant]
  6. REMERON [Concomitant]
  7. ALL OTHER THERAPEUTIC PRODUCTS [Concomitant]

REACTIONS (3)
  - CHEST PAIN [None]
  - DIZZINESS [None]
  - VENTRICULAR FIBRILLATION [None]
